FAERS Safety Report 5942056-0 (Version None)
Quarter: 2008Q4

REPORT INFORMATION
  Report Type: 
  Country: None (occurrence: None)
  Receive Date: 20081105
  Receipt Date: 20081031
  Transmission Date: 20090506
  Serious: Yes (Other)
  Sender: FDA-Public Use
  Company Number: A0751989A

PATIENT
  Age: 53 Year
  Sex: Female
  Weight: 111.4 kg

DRUGS (2)
  1. REQUIP [Suspect]
     Indication: RESTLESS LEGS SYNDROME
     Dosage: 1MG THREE TIMES PER DAY
     Route: 048
  2. NO CONCURRENT MEDICATION [Concomitant]

REACTIONS (5)
  - EXTRAPYRAMIDAL DISORDER [None]
  - HEAD TITUBATION [None]
  - HYPOKINESIA [None]
  - PARKINSONISM [None]
  - TREMOR [None]
